FAERS Safety Report 9630499 (Version 1)
Quarter: 2013Q4

REPORT INFORMATION
  Report Type: Spontaneous
  Country: ES (occurrence: ES)
  Receive Date: 20131018
  Receipt Date: 20131018
  Transmission Date: 20140711
  Serious: Yes (Other)
  Sender: FDA-Public Use
  Company Number: ES-009507513-1310ESP005679

PATIENT
  Age: 45 Year
  Sex: Male

DRUGS (2)
  1. RIBAVIRIN [Suspect]
     Indication: CHRONIC HEPATITIS C
     Dosage: UNK
     Route: 048
     Dates: start: 2010, end: 2010
  2. PEGINTERFERON ALFA-2B [Suspect]
     Indication: CHRONIC HEPATITIS C
     Dosage: UNK
     Dates: start: 2010, end: 2010

REACTIONS (4)
  - Liver transplant [Unknown]
  - Chronic hepatic failure [Unknown]
  - Drug ineffective [Unknown]
  - Hepatic cirrhosis [Unknown]
